FAERS Safety Report 5248653-2 (Version None)
Quarter: 2007Q1

REPORT INFORMATION
  Report Type: 
  Country: None (occurrence: None)
  Receive Date: 20070226
  Receipt Date: 20070226
  Transmission Date: 20070707
  Serious: Yes (Life-Threatening, Hospitalization)
  Sender: FDA-Public Use
  Company Number: None

PATIENT
  Age: 55 Year
  Sex: Male
  Weight: 70.3075 kg

DRUGS (1)
  1. EPIVIR [Suspect]
     Indication: HIV INFECTION
     Dosage: 300 MG DAILY PO
     Route: 048
     Dates: start: 20010110, end: 20061113

REACTIONS (2)
  - DRUG TOXICITY [None]
  - MITOCHONDRIAL CYTOPATHY [None]
